FAERS Safety Report 5929626-0 (Version None)
Quarter: 2008Q4

REPORT INFORMATION
  Report Type: 
  Country: None (occurrence: None)
  Receive Date: 20081024
  Receipt Date: 20081020
  Transmission Date: 20090506
  Serious: Yes (Death)
  Sender: FDA-Public Use
  Company Number: HK-SANOFI-SYNTHELABO-F01200801509

PATIENT
  Sex: Male

DRUGS (6)
  1. ESSENTIALE [Concomitant]
     Route: 048
  2. FAMOTIDINE [Concomitant]
     Route: 048
  3. LAMIVUDINE [Concomitant]
     Route: 048
  4. VITAMIN B6 [Concomitant]
     Route: 048
  5. NEXAVAR [Suspect]
     Dosage: BID, DAY 1-21
     Route: 048
     Dates: start: 20080707, end: 20080823
  6. OXALIPLATIN [Suspect]
     Indication: HEPATIC NEOPLASM MALIGNANT
     Dosage: DAY 1 OF A 14 DAY CYCLE
     Route: 041
     Dates: start: 20080804, end: 20080804

REACTIONS (3)
  - ASTHMA [None]
  - RESPIRATORY FAILURE [None]
  - UPPER GASTROINTESTINAL HAEMORRHAGE [None]
